FAERS Safety Report 15000913 (Version 2)
Quarter: 2018Q2

REPORT INFORMATION
  Report Type: Spontaneous
  Country: IT (occurrence: IT)
  Receive Date: 20180612
  Receipt Date: 20180626
  Transmission Date: 20180711
  Serious: Yes (Other)
  Sender: FDA-Public Use
  Company Number: IT-JNJFOC-20180610227

PATIENT

DRUGS (2)
  1. INFLIXIMAB, RECOMBINANT [Suspect]
     Active Substance: INFLIXIMAB
     Indication: CROHN^S DISEASE
     Route: 042
  2. INFLIXIMAB, RECOMBINANT [Suspect]
     Active Substance: INFLIXIMAB
     Indication: COLITIS ULCERATIVE
     Route: 042

REACTIONS (14)
  - Chest pain [Unknown]
  - Anaphylactic reaction [Unknown]
  - Nausea [Unknown]
  - Headache [Unknown]
  - Chest discomfort [Unknown]
  - Laryngospasm [Unknown]
  - Anaphylactic shock [Unknown]
  - Varicella [Unknown]
  - Flushing [Unknown]
  - Angioedema [Unknown]
  - Psoriasis [Unknown]
  - Hypertension [Unknown]
  - Presyncope [Unknown]
  - Dyspnoea [Unknown]
